FAERS Safety Report 11211830 (Version 1)
Quarter: 2015Q2

REPORT INFORMATION
  Report Type: Spontaneous
  Country: US (occurrence: None)
  Receive Date: 20150619
  Receipt Date: 20150619
  Transmission Date: 20150821
  Serious: Yes (Hospitalization)
  Sender: FDA-Public Use
  Company Number: None

PATIENT
  Age: 32 Year
  Sex: Male
  Weight: 83.92 kg

DRUGS (2)
  1. CLENBUTEROL [Suspect]
     Active Substance: CLENBUTEROL
     Indication: MUSCLE BUILDING THERAPY
  2. CLENBUTEROL [Suspect]
     Active Substance: CLENBUTEROL
     Indication: WEIGHT DECREASED

REACTIONS (5)
  - Pain [None]
  - Tremor [None]
  - Blood creatine phosphokinase increased [None]
  - Blood potassium decreased [None]
  - Myalgia [None]

NARRATIVE: CASE EVENT DATE: 20150517
